FAERS Safety Report 20504198 (Version 3)
Quarter: 2022Q1

REPORT INFORMATION
  Report Type: Spontaneous
  Country: AT (occurrence: AT)
  Receive Date: 20220222
  Receipt Date: 20220324
  Transmission Date: 20220423
  Serious: Yes (Hospitalization)
  Sender: FDA-Public Use
  Company Number: AT-MALLINCKRODT-T202200700

PATIENT
  Age: 55 Year
  Sex: Female
  Weight: 71 kg

DRUGS (3)
  1. UVADEX [Suspect]
     Active Substance: METHOXSALEN
     Indication: Complications of transplanted lung
     Dosage: 1.7 MILLILITER, TWICE A WEEK, EXTRACORPOREAL
     Route: 050
     Dates: start: 20220126, end: 20220126
  2. UVADEX [Suspect]
     Active Substance: METHOXSALEN
     Dosage: 2 MILLILITER, TWICE A WEEK, EXTRACORPOREAL
     Route: 050
     Dates: start: 20220127
  3. ANTICOAGULANT CITRATE DEXTROSE SOLUTION (ACD) NOS [Concomitant]
     Active Substance: CITRIC ACID MONOHYDRATE\DEXTROSE\SODIUM CITRATE
     Indication: Anticoagulant therapy
     Dosage: UNK
     Route: 065
     Dates: start: 20220126

REACTIONS (2)
  - Dyspnoea exertional [Recovered/Resolved]
  - Product use in unapproved indication [Not Recovered/Not Resolved]

NARRATIVE: CASE EVENT DATE: 20220126
